FAERS Safety Report 17276866 (Version 1)
Quarter: 2020Q1

REPORT INFORMATION
  Report Type: Spontaneous
  Country: US (occurrence: US)
  Receive Date: 20200115
  Receipt Date: 20200115
  Transmission Date: 20200409
  Serious: No
  Sender: FDA-Public Use
  Company Number: None

PATIENT
  Age: 64 Year
  Sex: Female
  Weight: 100.35 kg

DRUGS (15)
  1. METOCLOPRAMIDE. [Concomitant]
     Active Substance: METOCLOPRAMIDE
  2. VITAMIN B12 [Concomitant]
     Active Substance: CYANOCOBALAMIN
  3. GABAPENTIN. [Concomitant]
     Active Substance: GABAPENTIN
  4. OXYCODONE [Concomitant]
     Active Substance: OXYCODONE
  5. PREVAGEN [Concomitant]
     Active Substance: DIETARY SUPPLEMENT
  6. CARISOPRODOL. [Concomitant]
     Active Substance: CARISOPRODOL
  7. VITAMIN D2 [Concomitant]
     Active Substance: ERGOCALCIFEROL
  8. VITAMIN E [Concomitant]
     Active Substance: .ALPHA.-TOCOPHEROL
  9. CLONAZEPAM. [Concomitant]
     Active Substance: CLONAZEPAM
  10. QUETIAPINE. [Concomitant]
     Active Substance: QUETIAPINE
  11. ESTRADIOL VAGINAL CREAM USP 0.01% [Suspect]
     Active Substance: ESTRADIOL
     Indication: ATROPHIC VULVOVAGINITIS
     Dosage: ?          QUANTITY:42.5 1 GRAM;OTHER FREQUENCY:EVERY DAY;?
     Route: 067
     Dates: start: 20190327, end: 20190328
  12. MIDRIN [Concomitant]
     Active Substance: ACETAMINOPHEN\DICHLORALPHENAZONE\ISOMETHEPTENE
  13. PHOSPHATIDYL SERINE [Concomitant]
     Active Substance: PHOSPHATIDYL SERINE
  14. DICLOFENAC SODIUM TOPICAL GEL [Concomitant]
     Active Substance: DICLOFENAC SODIUM
  15. PRESERVISION W/AREDS2 [Concomitant]

REACTIONS (4)
  - Vulvovaginal discomfort [None]
  - Application site pain [None]
  - Insurance issue [None]
  - Product substitution issue [None]

NARRATIVE: CASE EVENT DATE: 20190327
